FAERS Safety Report 12996238 (Version 2)
Quarter: 2016Q4

REPORT INFORMATION
  Report Type: Report from Study
  Country: TW (occurrence: TW)
  Receive Date: 20161203
  Receipt Date: 20161209
  Transmission Date: 20170207
  Serious: Yes (Hospitalization)
  Sender: FDA-Public Use
  Company Number: TW-ASTRAZENECA-2016SF21720

PATIENT
  Age: 24522 Day
  Sex: Male
  Weight: 67 kg

DRUGS (2)
  1. IRESSA [Suspect]
     Active Substance: GEFITINIB
     Indication: NON-SMALL CELL LUNG CANCER METASTATIC
     Route: 048
     Dates: start: 20151116, end: 20160502
  2. IRESSA [Suspect]
     Active Substance: GEFITINIB
     Indication: NON-SMALL CELL LUNG CANCER METASTATIC
     Route: 048
     Dates: start: 20160511, end: 20161025

REACTIONS (2)
  - Pneumonia [Recovered/Resolved]
  - Perineal abscess [Recovered/Resolved]

NARRATIVE: CASE EVENT DATE: 20161025
